FAERS Safety Report 7810150-5 (Version None)
Quarter: 2011Q4

REPORT INFORMATION
  Report Type: 
  Country: None (occurrence: None)
  Receive Date: 20111012
  Receipt Date: 20111006
  Transmission Date: 20120403
  Serious: Yes (Death)
  Sender: FDA-Public Use
  Company Number: SI-AMGEN-SVNCT2011048006

PATIENT
  Sex: Male

DRUGS (5)
  1. SODIUM CITRATE [Concomitant]
  2. CINACALCET HYDROCHLORIDE [Suspect]
     Indication: HYPERPARATHYROIDISM SECONDARY
     Dosage: 60 MG, UNK
     Route: 048
     Dates: start: 20110330
  3. ZEMPLAR [Concomitant]
     Dosage: 4 MG, UNK
     Route: 048
  4. DARBEPOETIN ALFA [Concomitant]
     Dosage: 60 MUG, QWK
     Route: 042
  5. CALCII CARBONAS [Concomitant]

REACTIONS (1)
  - DEATH [None]
